APPROVED DRUG PRODUCT: SANDRIL
Active Ingredient: RESERPINE
Strength: 2.5MG/ML
Dosage Form/Route: INJECTABLE;INJECTION
Application: N010012 | Product #001
Applicant: ELI LILLY AND CO
Approved: Approved Prior to Jan 1, 1982 | RLD: No | RS: No | Type: DISCN